FAERS Safety Report 7841601-8 (Version None)
Quarter: 2011Q4

REPORT INFORMATION
  Report Type: 
  Country: None (occurrence: None)
  Receive Date: 20111025
  Receipt Date: 20111018
  Transmission Date: 20120403
  Serious: Yes (Life-Threatening)
  Sender: FDA-Public Use
  Company Number: JP-GENZYME-THYM-1002845

PATIENT
  Age: 34 Year
  Sex: Male
  Weight: 59 kg

DRUGS (1)
  1. THYMOGLOBULIN [Suspect]
     Indication: BONE MARROW CONDITIONING REGIMEN
     Dosage: 1.25 MG/KG, QD
     Route: 042
     Dates: start: 20110929, end: 20110930

REACTIONS (1)
  - CEREBRAL HAEMORRHAGE [None]
